FAERS Safety Report 6212317-9 (Version None)
Quarter: 2009Q2

REPORT INFORMATION
  Report Type: 
  Country: None (occurrence: None)
  Receive Date: 20090529
  Receipt Date: 20090514
  Transmission Date: 20091009
  Serious: Yes (Disabling)
  Sender: FDA-Public Use
  Company Number: 000660

PATIENT
  Sex: Female

DRUGS (11)
  1. ROTIGOTINE (ROTIGOTINE) [Suspect]
     Indication: RESTLESS LEGS SYNDROME
     Dosage: 2.25 MG TRANSDERMAL, 4.5 MG, TRANSDERMAL, 6.75 MG TRANSDERMAL, 2.25 MG TRANSDERMAL
     Route: 062
     Dates: start: 20090313, end: 20090316
  2. ROTIGOTINE (ROTIGOTINE) [Suspect]
     Indication: RESTLESS LEGS SYNDROME
     Dosage: 2.25 MG TRANSDERMAL, 4.5 MG, TRANSDERMAL, 6.75 MG TRANSDERMAL, 2.25 MG TRANSDERMAL
     Route: 062
     Dates: start: 20081020
  3. ROTIGOTINE (ROTIGOTINE) [Suspect]
     Indication: RESTLESS LEGS SYNDROME
     Dosage: 2.25 MG TRANSDERMAL, 4.5 MG, TRANSDERMAL, 6.75 MG TRANSDERMAL, 2.25 MG TRANSDERMAL
     Route: 062
     Dates: start: 20081031
  4. ROTIGOTINE (ROTIGOTINE) [Suspect]
     Indication: RESTLESS LEGS SYNDROME
     Dosage: 2.25 MG TRANSDERMAL, 4.5 MG, TRANSDERMAL, 6.75 MG TRANSDERMAL, 2.25 MG TRANSDERMAL
     Route: 062
     Dates: start: 20081117
  5. ROTIGOTINE (ROTIGOTINE) [Suspect]
     Indication: RESTLESS LEGS SYNDROME
     Dosage: 2.25 MG TRANSDERMAL, 4.5 MG, TRANSDERMAL, 6.75 MG TRANSDERMAL, 2.25 MG TRANSDERMAL
     Route: 062
     Dates: start: 20090309
  6. AMLODIPINE BESILATE [Concomitant]
  7. CANDESARTAN CLIEXETIL [Concomitant]
  8. POTASSIUM CHLORIDE [Concomitant]
  9. BETAMETHASONE [Concomitant]
  10. DIPHENHYDRAMINE HCL [Concomitant]
  11. ATORVASTATIN CALCIUM [Concomitant]

REACTIONS (5)
  - APPLICATION SITE DISCOLOURATION [None]
  - APPLICATION SITE ERYTHEMA [None]
  - APPLICATION SITE PRURITUS [None]
  - DERMATITIS CONTACT [None]
  - DRUG EFFECT DECREASED [None]
